FAERS Safety Report 10653189 (Version 1)
Quarter: 2014Q4

REPORT INFORMATION
  Report Type: Spontaneous
  Country: US (occurrence: US)
  Receive Date: 20141215
  Receipt Date: 20141215
  Transmission Date: 20150529
  Serious: Yes (Hospitalization, Other)
  Sender: FDA-Public Use
  Company Number: US-GLAXOSMITHKLINE-US2014034894

PATIENT
  Age: 49 Year
  Sex: Female

DRUGS (1)
  1. BENLYSTA [Suspect]
     Active Substance: BELIMUMAB
     Indication: SYSTEMIC LUPUS ERYTHEMATOSUS
     Dosage: UNK
     Dates: start: 20141028

REACTIONS (13)
  - Nervous system disorder [Unknown]
  - Petit mal epilepsy [Unknown]
  - Hospitalisation [Not Recovered/Not Resolved]
  - Tremor [Unknown]
  - Muscle twitching [Unknown]
  - Small intestinal obstruction [Unknown]
  - Systemic lupus erythematosus rash [Unknown]
  - Memory impairment [Unknown]
  - Systemic lupus erythematosus [Not Recovered/Not Resolved]
  - Pharyngeal ulceration [Unknown]
  - Drug ineffective [Unknown]
  - Cheilitis [Unknown]
  - Platelet count decreased [Unknown]

NARRATIVE: CASE EVENT DATE: 2014
